FAERS Safety Report 23921232 (Version 1)
Quarter: 2024Q2

REPORT INFORMATION
  Report Type: Spontaneous
  Country: US (occurrence: None)
  Receive Date: 20240529
  Receipt Date: 20240529
  Transmission Date: 20240716
  Serious: Yes (unspecified)
  Sender: FDA-Public Use
  Company Number: None

PATIENT
  Age: 35 Year
  Sex: Female
  Weight: 88.2 kg

DRUGS (1)
  1. ZEPBOUND [Suspect]
     Active Substance: TIRZEPATIDE
     Indication: Weight decreased
     Dosage: OTHER FREQUENCY : WEEKLY;?OTHER ROUTE : INJECTED INTO STOMACH;?
     Route: 050
     Dates: start: 20240315, end: 20240511

REACTIONS (4)
  - Panic attack [None]
  - Restlessness [None]
  - Anxiety [None]
  - Alcohol use [None]

NARRATIVE: CASE EVENT DATE: 20240525
